FAERS Safety Report 4300266-2 (Version None)
Quarter: 2004Q1

REPORT INFORMATION
  Report Type: 
  Country: None (occurrence: None)
  Receive Date: 20040218
  Receipt Date: 20040204
  Transmission Date: 20041129
  Serious: Yes (Other)
  Sender: FDA-Public Use
  Company Number: USA030434259

PATIENT
  Age: 80 Year
  Sex: Female
  Weight: 64 kg

DRUGS (14)
  1. FORTEO [Suspect]
     Indication: OSTEOPOROSIS
     Dosage: 20 UG/DAY
     Dates: start: 20030328, end: 20040101
  2. ACIPHEX [Concomitant]
  3. BEXTRA [Concomitant]
  4. FLAX SEED OIL [Concomitant]
  5. PAMELOR [Concomitant]
  6. PREMARIN [Concomitant]
  7. SYNTHROID [Concomitant]
  8. TENORMIN [Concomitant]
  9. ZOCOR [Concomitant]
  10. ZETIA [Concomitant]
  11. VITAMIN E [Concomitant]
  12. VITAMIN D [Concomitant]
  13. VITAMIN C [Concomitant]
  14. VITAMIN B-12 [Concomitant]

REACTIONS (7)
  - ABDOMINAL DISTENSION [None]
  - CONSTIPATION [None]
  - FALL [None]
  - INJECTION SITE HAEMORRHAGE [None]
  - MENISCUS LESION [None]
  - RECTAL TENESMUS [None]
  - WEIGHT INCREASED [None]
